FAERS Safety Report 5760468-5 (Version None)
Quarter: 2008Q2

REPORT INFORMATION
  Report Type: 
  Country: None (occurrence: None)
  Receive Date: 20080602
  Receipt Date: 20080520
  Transmission Date: 20081010
  Serious: Yes (Hospitalization)
  Sender: FDA-Public Use
  Company Number: 2005BI018930

PATIENT
  Age: 68 Year
  Sex: Female
  Weight: 63.5036 kg

DRUGS (1)
  1. AVONEX [Suspect]
     Indication: MULTIPLE SCLEROSIS
     Dosage: 30 UG; QW; IM
     Route: 030
     Dates: start: 20040101

REACTIONS (6)
  - ALOPECIA [None]
  - ANAEMIA [None]
  - HYPERSENSITIVITY [None]
  - METASTASES TO LUNG [None]
  - METASTASES TO STOMACH [None]
  - OVARIAN CANCER [None]
